FAERS Safety Report 22309238 (Version 1)
Quarter: 2023Q2

REPORT INFORMATION
  Report Type: Report from Study
  Country: KR (occurrence: KR)
  Receive Date: 20230511
  Receipt Date: 20230511
  Transmission Date: 20230722
  Serious: Yes (Hospitalization, Other)
  Sender: FDA-Public Use
  Company Number: KR-CELLTRION INC.-2023KR001200

PATIENT

DRUGS (11)
  1. INFLIXIMAB [Suspect]
     Active Substance: INFLIXIMAB
     Indication: Colitis ulcerative
     Dosage: 120 MG, Q2WEEKS
     Route: 058
     Dates: start: 20220622, end: 20220906
  2. INFLIXIMAB [Suspect]
     Active Substance: INFLIXIMAB
     Dosage: CONVERTED TO REMSIMA SC ON THE NEXT ADMINISTRATION DATE
     Route: 058
     Dates: start: 20220726
  3. INFLIXIMAB [Suspect]
     Active Substance: INFLIXIMAB
     Indication: Colitis ulcerative
     Dosage: CONTINUED MAINTENANCE THERAPY AT 500 MG IV
     Route: 042
     Dates: start: 20210809, end: 20220427
  4. INFLIXIMAB [Suspect]
     Active Substance: INFLIXIMAB
     Dosage: 500 MG, EVERY 8 WEEKS
     Route: 042
     Dates: start: 20220920
  5. AZATHIOPRINE [Concomitant]
     Active Substance: AZATHIOPRINE
     Indication: Colitis ulcerative
     Dosage: 50 MG, QD
     Route: 048
     Dates: start: 20220823
  6. TIROPRAMIDE [Concomitant]
     Active Substance: TIROPRAMIDE
     Indication: Colitis ulcerative
     Dosage: 100 MG, BID
     Route: 048
     Dates: start: 20220622, end: 20221115
  7. RAMNOS [Concomitant]
     Indication: Colitis ulcerative
     Dosage: 250 MG, BID
     Route: 048
     Dates: start: 20220801, end: 20220824
  8. ASACOL [Concomitant]
     Active Substance: MESALAMINE
     Indication: Colitis ulcerative
     Dosage: 2400 MG, BID
     Route: 048
     Dates: start: 20220427
  9. Ciplus [Concomitant]
     Indication: Pyrexia
     Dosage: 400 MG, BID
     Route: 042
     Dates: start: 20220801, end: 20220809
  10. PROPACETAMOL HYDROCHLORIDE [Concomitant]
     Active Substance: PROPACETAMOL HYDROCHLORIDE
     Indication: Pyrexia
     Dosage: 2 G, PRN
     Route: 042
     Dates: start: 20220729, end: 20220804
  11. TYRENOL [Concomitant]
     Indication: Pyrexia
     Dosage: 650 MG, PRN
     Route: 048
     Dates: start: 20220726, end: 20220829

REACTIONS (2)
  - Clostridium difficile infection [Recovered/Resolved]
  - Overdose [Unknown]

NARRATIVE: CASE EVENT DATE: 20220729
